FAERS Safety Report 16441330 (Version 1)
Quarter: 2019Q2

REPORT INFORMATION
  Report Type: Other
  Country: US (occurrence: US)
  Receive Date: 20190617
  Receipt Date: 20190617
  Transmission Date: 20190711
  Serious: No
  Sender: FDA-Public Use
  Company Number: US-IMPAX LABORATORIES, LLC-2018-IPXL-03644

PATIENT
  Age: 57 Year
  Sex: Female
  Weight: 86 kg

DRUGS (3)
  1. PYRIDOSTIGMINE BROMIDE. [Suspect]
     Active Substance: PYRIDOSTIGMINE BROMIDE
     Dosage: 90 MILLIGRAM, 1.5 TABLETS, EVERY 3 TO 4 HOURS
     Route: 048
     Dates: start: 201808
  2. PYRIDOSTIGMINE BROMIDE. [Suspect]
     Active Substance: PYRIDOSTIGMINE BROMIDE
     Indication: MYASTHENIA GRAVIS
     Dosage: 60 MILLIGRAM TABLET, EVERY 3 TO 4 HOURS
     Route: 048
  3. GAMMAGARD [Suspect]
     Active Substance: HUMAN IMMUNOGLOBULIN G
     Indication: PRODUCT USED FOR UNKNOWN INDICATION
     Dosage: UNK, AS DIRECTED
     Route: 042

REACTIONS (3)
  - Poor quality product administered [Not Recovered/Not Resolved]
  - Product physical issue [Unknown]
  - Drug ineffective [Not Recovered/Not Resolved]

NARRATIVE: CASE EVENT DATE: 2018
